FAERS Safety Report 9818391 (Version 2)
Quarter: 2014Q1

REPORT INFORMATION
  Report Type: Spontaneous
  Country: US (occurrence: US)
  Receive Date: 20140115
  Receipt Date: 20140303
  Transmission Date: 20141002
  Serious: No
  Sender: FDA-Public Use
  Company Number: US-PFIZER INC-2014008756

PATIENT
  Age: 69 Year
  Sex: Female
  Weight: 132 kg

DRUGS (1)
  1. ADVIL PM [Suspect]
     Indication: INSOMNIA
     Dosage: TWO TABLETS, ONCE A DAY AT NIGHT
     Route: 048
     Dates: start: 20140108

REACTIONS (1)
  - Drug ineffective [Unknown]
